FAERS Safety Report 17690687 (Version 1)
Quarter: 2020Q2

REPORT INFORMATION
  Report Type: Spontaneous
  Country: DE (occurrence: DE)
  Receive Date: 20200421
  Receipt Date: 20200421
  Transmission Date: 20200714
  Serious: Yes (Hospitalization)
  Sender: FDA-Public Use
  Company Number: DE-TEVA-2020-DE-1225632

PATIENT
  Age: 44 Year
  Sex: Male
  Weight: 110 kg

DRUGS (5)
  1. OLANZAPIN [Concomitant]
     Active Substance: OLANZAPINE
     Dosage: 5 MILLIGRAM DAILY; 2.5 MG, 1-0-0-1, PLUS 2.5 MG IF NEEDED
  2. VENLAFAXINE [Suspect]
     Active Substance: VENLAFAXINE HYDROCHLORIDE
     Dosage: 150 MILLIGRAM DAILY;  1-0-0-0,
     Route: 065
  3. METAMIZOL [Concomitant]
     Active Substance: METAMIZOLE SODIUM
     Dosage: 500 MG, IF NECESSARY
  4. BISOPROLOL [Concomitant]
     Active Substance: BISOPROLOL
     Dosage: 10 MILLIGRAM DAILY; 5 MG, 1-0-1-0
  5. PIPAMPERON [Concomitant]
     Active Substance: PIPAMPERONE HYDROCHLORIDE
     Dosage: 1 DOSAGE FORMS DAILY; 40 MG, 0.5-0-0.5-0, PLUS 40 MG IF NEEDED
     Route: 065

REACTIONS (5)
  - Anxiety [Unknown]
  - Restlessness [Unknown]
  - Nervousness [Unknown]
  - Decreased appetite [Unknown]
  - Depressed mood [Unknown]
